FAERS Safety Report 7553863-5 (Version None)
Quarter: 2011Q2

REPORT INFORMATION
  Report Type: 
  Country: None (occurrence: None)
  Receive Date: 20110617
  Receipt Date: 20110610
  Transmission Date: 20111010
  Serious: Yes (Death)
  Sender: FDA-Public Use
  Company Number: NL-BRISTOL-MYERS SQUIBB COMPANY-15829815

PATIENT

DRUGS (3)
  1. CETUXIMAB [Suspect]
     Indication: COLORECTAL CANCER
     Dosage: 400MG/M2 D1 OF THE LAST CYCLE FOLLOWED250MG/M2 WEEKLY THEREAFTER
  2. OXALIPLATIN [Concomitant]
     Indication: COLORECTAL CANCER
     Dosage: ON DAY 1
  3. CAPECITABINE [Concomitant]
     Indication: COLORECTAL CANCER
     Dosage: 3 WEEKS CYCLES,TWICE DAILY IN 14 DAYS

REACTIONS (1)
  - TOXICITY TO VARIOUS AGENTS [None]
